FAERS Safety Report 15981341 (Version 1)
Quarter: 2019Q1

REPORT INFORMATION
  Report Type: Spontaneous
  Country: US (occurrence: US)
  Receive Date: 20190218
  Receipt Date: 20190218
  Transmission Date: 20190418
  Serious: No
  Sender: FDA-Public Use
  Company Number: None

PATIENT
  Age: 3 Month
  Sex: Male
  Weight: 7.65 kg

DRUGS (2)
  1. DOLLAR GENERAL GRIPE WATER [Suspect]
     Active Substance: DIETARY SUPPLEMENT
     Indication: ABDOMINAL PAIN
     Route: 048
     Dates: start: 20181015, end: 20190218
  2. DOLLAR GENERAL GRIPE WATER [Suspect]
     Active Substance: DIETARY SUPPLEMENT
     Indication: FLATULENCE
     Route: 048
     Dates: start: 20181015, end: 20190218

REACTIONS (1)
  - Vomiting [None]

NARRATIVE: CASE EVENT DATE: 20181018
